FAERS Safety Report 8991179 (Version 2)
Quarter: 2013Q1

REPORT INFORMATION
  Report Type: Spontaneous
  Country: AU (occurrence: AU)
  Receive Date: 20121231
  Receipt Date: 20130104
  Transmission Date: 20140127
  Serious: Yes (Other)
  Sender: FDA-Public Use
  Company Number: AU-AMGEN-AUSSP2012072462

PATIENT
  Age: 45 Year
  Sex: Female
  Weight: 63 kg

DRUGS (2)
  1. ENBREL [Suspect]
     Indication: JUVENILE IDIOPATHIC ARTHRITIS
     Dosage: 50 MG, WEEKLY
     Route: 058
  2. ORAL CONTRACEPTIVE NOS [Concomitant]
     Dosage: UNK

REACTIONS (8)
  - Injection site mass [Unknown]
  - Product quality issue [Unknown]
  - Condition aggravated [Unknown]
  - Insomnia [Unknown]
  - Injection site reaction [Unknown]
  - Injection site pain [Unknown]
  - Injection site warmth [Unknown]
  - Injection site pruritus [Unknown]
